FAERS Safety Report 8404051-1 (Version None)
Quarter: 2012Q2

REPORT INFORMATION
  Report Type: 
  Country: None (occurrence: None)
  Receive Date: 20120601
  Receipt Date: 20110926
  Transmission Date: 20120825
  Serious: No
  Sender: FDA-Public Use
  Company Number: US-NOVEN-11US003303

PATIENT
  Sex: Male
  Weight: 50.794 kg

DRUGS (7)
  1. INVEGA [Concomitant]
     Indication: ATTENTION DEFICIT/HYPERACTIVITY DISORDER
     Dosage: 3 MG, QD
     Route: 048
  2. INVEGA [Concomitant]
     Indication: AFFECTIVE DISORDER
  3. LAMICTAL [Concomitant]
     Indication: AFFECTIVE DISORDER
  4. ALLERGY MEDICATION [Concomitant]
     Indication: HYPERSENSITIVITY
     Dosage: UNK
     Route: 048
  5. DAYTRANA [Suspect]
     Indication: ATTENTION DEFICIT/HYPERACTIVITY DISORDER
     Dosage: 15 MG, QD FOR 9 HOURS
     Route: 062
     Dates: start: 20110101
  6. DAYTRANA [Suspect]
     Indication: AFFECTIVE DISORDER
  7. LAMICTAL [Concomitant]
     Indication: ATTENTION DEFICIT/HYPERACTIVITY DISORDER
     Dosage: UNK
     Route: 048

REACTIONS (4)
  - DRUG ADMINISTRATION ERROR [None]
  - PRODUCT QUALITY ISSUE [None]
  - NO ADVERSE EVENT [None]
  - WRONG TECHNIQUE IN DRUG USAGE PROCESS [None]
